FAERS Safety Report 8085480-5 (Version None)
Quarter: 2012Q1

REPORT INFORMATION
  Report Type: 
  Country: None (occurrence: None)
  Receive Date: 20120128
  Receipt Date: 20110416
  Transmission Date: 20120608
  Serious: No
  Sender: FDA-Public Use
  Company Number: US-ABBOTT-11P-163-0707737-00

PATIENT
  Sex: Female
  Weight: 61.29 kg

DRUGS (29)
  1. MELATONIN [Suspect]
     Indication: INSOMNIA
     Dosage: AT NIGHT
  2. VAGIFEM [Concomitant]
     Indication: VULVOVAGINAL DRYNESS
  3. FLAXSEED OIL [Concomitant]
     Indication: SUPPLEMENTATION THERAPY
  4. AMBIEN [Concomitant]
     Indication: SLEEP DISORDER THERAPY
     Dosage: 1/4 TO A FULL TAB AS NEEDED AT NIGHT
  5. VAGIFEM [Concomitant]
     Indication: MENOPAUSAL SYMPTOMS
     Dosage: 2-3 TIMES PER WEEK AS NEEDED
  6. FIBER [Concomitant]
     Indication: CONSTIPATION
  7. HUMIRA [Suspect]
     Indication: CROHN'S DISEASE
     Dosage: 80 MG LOADING DOSE - 2(40MG DOSES) IN 1 DAY
     Dates: start: 20110215, end: 20110215
  8. ESTRADIOL [Concomitant]
     Indication: OOPHORECTOMY
  9. LEVOTHYROXINE SODIUM [Concomitant]
     Indication: HYPOTHYROIDISM
  10. BENTYL [Concomitant]
     Indication: CROHN'S DISEASE
  11. RITALIN LA [Concomitant]
     Indication: NARCOLEPSY
  12. RITALIN [Concomitant]
     Indication: NARCOLEPSY
  13. FIBER [Concomitant]
     Indication: MINERAL SUPPLEMENTATION
     Dosage: TAB
  14. MELATONIN [Concomitant]
     Indication: SLEEP DISORDER THERAPY
  15. SYNTHROID [Concomitant]
     Indication: HYPOTHYROIDISM
     Dosage: ON FOR YEARS
  16. HUMIRA [Suspect]
     Route: 058
     Dates: start: 20110201, end: 20110303
  17. LIPITOR [Concomitant]
     Indication: BLOOD CHOLESTEROL INCREASED
  18. MULTIPLE VITAMINS [Concomitant]
     Indication: VITAMIN SUPPLEMENTATION
  19. WELLBUTRIN [Concomitant]
     Indication: DEPRESSION
  20. CALCIUM [Concomitant]
     Indication: MINERAL SUPPLEMENTATION
  21. MULTI-VITAMIN [Concomitant]
     Indication: SUPPLEMENTATION THERAPY
  22. FENTANYL [Concomitant]
     Indication: PRODUCT USED FOR UNKNOWN INDICATION
  23. ROPINIROLE [Concomitant]
     Indication: RESTLESS LEGS SYNDROME
  24. ESTRADIOL [Concomitant]
     Indication: HORMONE REPLACEMENT THERAPY
  25. ESTRADIOL [Concomitant]
     Indication: HYSTERECTOMY
  26. BENTYL [Concomitant]
     Indication: ABDOMINAL PAIN
     Dosage: AS NEEDED
     Dates: start: 20110201
  27. AMOXIL [Concomitant]
     Indication: PRODUCT USED FOR UNKNOWN INDICATION
  28. STOOL SOFTENER [Concomitant]
     Indication: CONSTIPATION
     Dosage: FOUR TO FIVE TABS A DAY
  29. RITALIN [Concomitant]
     Indication: NARCOLEPSY

REACTIONS (14)
  - EATING DISORDER [None]
  - ABDOMINAL PAIN UPPER [None]
  - NAUSEA [None]
  - OEDEMA PERIPHERAL [None]
  - RASH [None]
  - PARAESTHESIA [None]
  - ABDOMINAL DISTENSION [None]
  - VISUAL IMPAIRMENT [None]
  - FATIGUE [None]
  - DRUG HYPERSENSITIVITY [None]
  - HYPOAESTHESIA [None]
  - TENDERNESS [None]
  - ERUCTATION [None]
  - HEADACHE [None]
